FAERS Safety Report 8007985-5 (Version None)
Quarter: 2011Q4

REPORT INFORMATION
  Report Type: 
  Country: None (occurrence: None)
  Receive Date: 20111222
  Receipt Date: 20111222
  Transmission Date: 20120403
  Serious: No
  Sender: FDA-Public Use
  Company Number: None

PATIENT
  Sex: Female
  Weight: 61.2356 kg

DRUGS (1)
  1. CRESTOR [Suspect]
     Indication: BLOOD CHOLESTEROL INCREASED
     Dosage: 2004 4/10

REACTIONS (7)
  - MUSCULOSKELETAL PAIN [None]
  - ACTIVITIES OF DAILY LIVING IMPAIRED [None]
  - PAIN [None]
  - ARTHRALGIA [None]
  - TENDON RUPTURE [None]
  - HEADACHE [None]
  - BACK PAIN [None]
